FAERS Safety Report 8169172-X (Version None)
Quarter: 2012Q1

REPORT INFORMATION
  Report Type: 
  Country: None (occurrence: None)
  Receive Date: 20120227
  Receipt Date: 20120222
  Transmission Date: 20120608
  Serious: Yes (Life-Threatening)
  Sender: FDA-Public Use
  Company Number: RU-ASTRAZENECA-2012SE12353

PATIENT
  Age: 29 Year
  Sex: Female

DRUGS (21)
  1. SODIUM CEFOTAXIME [Concomitant]
  2. NEOHEMODES [Concomitant]
  3. ATROPINE SULFATE [Concomitant]
  4. ACESOLE [Concomitant]
  5. DITHYLIN [Concomitant]
  6. MARCAINE [Suspect]
     Indication: SPINAL ANAESTHESIA
  7. TRACTRIUM [Concomitant]
  8. CORGLYCARD [Concomitant]
  9. SODIUM CHLORIDE [Concomitant]
  10. PROPOFOL [Concomitant]
  11. PROMEDOLE [Concomitant]
  12. DROTAVERINE [Concomitant]
  13. DIMEDROLE [Concomitant]
  14. REAMBERINE [Concomitant]
  15. FENTANYL [Concomitant]
  16. PENZITAL [Concomitant]
  17. SPASGAN [Concomitant]
  18. ALMAGEL [Concomitant]
  19. METOCLOPRAMIDE [Concomitant]
  20. RANITIDINE [Concomitant]
  21. QUAMATEL [Concomitant]

REACTIONS (3)
  - PARESIS [None]
  - RESPIRATORY DISTRESS [None]
  - QUADRIPLEGIA [None]
